FAERS Safety Report 7983763-8 (Version None)
Quarter: 2011Q4

REPORT INFORMATION
  Report Type: 
  Country: None (occurrence: None)
  Receive Date: 20111215
  Receipt Date: 20111207
  Transmission Date: 20120403
  Serious: Yes (Other)
  Sender: FDA-Public Use
  Company Number: US-US-EMD SERONO, INC.-7100772

PATIENT
  Sex: Female

DRUGS (3)
  1. REBIF [Suspect]
  2. REBIF [Suspect]
     Indication: PRODUCT USED FOR UNKNOWN INDICATION
     Route: 058
     Dates: start: 20110605
  3. REBIF [Suspect]
     Route: 058
     Dates: start: 20111205

REACTIONS (1)
  - SMEAR CERVIX ABNORMAL [None]
